FAERS Safety Report 7349171-8 (Version None)
Quarter: 2011Q1

REPORT INFORMATION
  Report Type: 
  Country: None (occurrence: None)
  Receive Date: 20110314
  Receipt Date: 20110303
  Transmission Date: 20110831
  Serious: Yes (Other)
  Sender: FDA-Public Use
  Company Number: JP-BAYER-201014156BYL

PATIENT
  Sex: Male
  Weight: 53 kg

DRUGS (18)
  1. HUMALOG [Concomitant]
     Dosage: 46 U (DAILY DOSE), , INTRAVENOUS
     Route: 042
     Dates: start: 20091001
  2. NEXAVAR [Suspect]
     Dosage: 600 MG (DAILY DOSE), , ORAL
     Route: 048
     Dates: start: 20100701, end: 20100905
  3. URSO 250 [Concomitant]
     Indication: JAUNDICE
     Dosage: 300 MG (DAILY DOSE), , ORAL
     Route: 048
     Dates: start: 20080101, end: 20100714
  4. PURSENNID [Concomitant]
     Dosage: 24 MG (DAILY DOSE), , ORAL
     Route: 048
     Dates: start: 20090101, end: 20100513
  5. LENDORMIN [Concomitant]
     Dosage: 0.25 MG (DAILY DOSE), , ORAL
     Route: 048
     Dates: start: 20060101
  6. URSO 250 [Concomitant]
     Dosage: 600 MG (DAILY DOSE), , ORAL
     Route: 048
     Dates: start: 20100715
  7. BLADDERON [Concomitant]
     Dosage: 400 MG (DAILY DOSE), , ORAL
     Route: 048
     Dates: start: 20100101
  8. PAXIL [Concomitant]
     Dosage: 20 MG (DAILY DOSE), , ORAL
     Route: 048
     Dates: start: 20080101
  9. NEXAVAR [Suspect]
     Dosage: 600 MG (DAILY DOSE), , ORAL
     Route: 048
     Dates: start: 20101021, end: 20101111
  10. NEXAVAR [Suspect]
  11. HOKUNALIN [Concomitant]
     Indication: COUGH
     Dosage: 2 MG (DAILY DOSE), , TRANSDERMAL
     Route: 062
     Dates: start: 20100701
  12. NEXAVAR [Suspect]
     Indication: HEPATIC NEOPLASM MALIGNANT
     Route: 048
     Dates: start: 20100325, end: 20100630
  13. NEXAVAR [Suspect]
     Dosage: 400 MG (DAILY DOSE), , ORAL
     Route: 048
     Dates: start: 20100910, end: 20101020
  14. URINARY ANTISPASMODICS [Concomitant]
     Dosage: 0.1 MG (DAILY DOSE), , ORAL
     Route: 048
     Dates: start: 20090101
  15. FLIVAS [Concomitant]
     Dosage: 75 MG (DAILY DOSE), , ORAL
     Route: 048
  16. PARIET [Concomitant]
     Dosage: 10 MG (DAILY DOSE), , ORAL
     Route: 048
     Dates: start: 20080101
  17. LANTUS [Concomitant]
     Dosage: 24 U (DAILY DOSE), , INTRAVENOUS
     Route: 042
     Dates: start: 20091001
  18. ALDACTONE [Suspect]
     Indication: PRODUCT USED FOR UNKNOWN INDICATION
     Dosage: UNK
     Route: 048
     Dates: end: 20110101

REACTIONS (23)
  - HYPOGLYCAEMIA [None]
  - HAEMOPTYSIS [None]
  - TINNITUS [None]
  - HYPERTHYROIDISM [None]
  - PRURITUS GENERALISED [None]
  - PYREXIA [None]
  - PARAESTHESIA [None]
  - ABDOMINAL DISTENSION [None]
  - GLOSSITIS [None]
  - ABDOMINAL PAIN [None]
  - HEADACHE [None]
  - DECREASED APPETITE [None]
  - COUGH [None]
  - JAUNDICE [None]
  - ALOPECIA [None]
  - PALMAR-PLANTAR ERYTHRODYSAESTHESIA SYNDROME [None]
  - DIARRHOEA [None]
  - ABDOMINAL PAIN UPPER [None]
  - PHARYNGITIS [None]
  - STOMATITIS [None]
  - FOLLICULITIS [None]
  - CHEILITIS [None]
  - DEAFNESS [None]
